FAERS Safety Report 11157745 (Version 5)
Quarter: 2016Q2

REPORT INFORMATION
  Report Type: Spontaneous
  Country: JP (occurrence: JP)
  Receive Date: 20150603
  Receipt Date: 20160601
  Transmission Date: 20160815
  Serious: Yes (Death, Hospitalization)
  Sender: FDA-Public Use
  Company Number: JP-JNJFOC-20150600365

PATIENT
  Age: 82 Year
  Sex: Male
  Weight: 59 kg

DRUGS (4)
  1. PREDONINE [Concomitant]
     Active Substance: PREDNISOLONE\PREDNISOLONE ACETATE\PREDNISOLONE SODIUM SUCCINATE
     Indication: HORMONE-REFRACTORY PROSTATE CANCER
     Dosage: PERORAL MEDICINE
     Route: 048
     Dates: start: 20150304, end: 20150424
  2. BETANIS [Concomitant]
     Active Substance: MIRABEGRON
     Indication: HYPERTONIC BLADDER
     Dosage: PERORAL MEDICINE
     Route: 048
     Dates: start: 20150304, end: 20150424
  3. TAKEPRON [Concomitant]
     Active Substance: LANSOPRAZOLE
     Indication: GASTRIC ULCER
     Dosage: PERORAL MEDICINE
     Route: 048
     Dates: start: 20150304, end: 20150424
  4. ZYTIGA [Suspect]
     Active Substance: ABIRATERONE ACETATE
     Indication: HORMONE-REFRACTORY PROSTATE CANCER
     Route: 048
     Dates: start: 20150304, end: 20150420

REACTIONS (4)
  - Septic shock [Fatal]
  - Pyrexia [Unknown]
  - Drug effect incomplete [Unknown]
  - Intestinal obstruction [Fatal]

NARRATIVE: CASE EVENT DATE: 2015
